FAERS Safety Report 5934850-7 (Version None)
Quarter: 2008Q4

REPORT INFORMATION
  Report Type: 
  Country: None (occurrence: None)
  Receive Date: 20081027
  Receipt Date: 20081014
  Transmission Date: 20090506
  Serious: Yes (Death, Hospitalization)
  Sender: FDA-Public Use
  Company Number: 8038183

PATIENT
  Age: 18 Year
  Sex: Female
  Weight: 45 kg

DRUGS (5)
  1. PREDNISOLONE [Suspect]
     Indication: CHEMOTHERAPY
  2. CYCLOPHOSPHAMIDE [Suspect]
     Indication: CHEMOTHERAPY
  3. DOXORUBICIN HCL [Suspect]
     Indication: CHEMOTHERAPY
     Dosage: IV
     Route: 042
  4. RITUXIMAB [Suspect]
     Indication: CHEMOTHERAPY
  5. VINCRISTINE [Suspect]
     Indication: CHEMOTHERAPY

REACTIONS (4)
  - CARDIAC ARREST [None]
  - CARDIAC DISORDER [None]
  - CONGESTIVE CARDIOMYOPATHY [None]
  - IDIOSYNCRATIC DRUG REACTION [None]
